FAERS Safety Report 8650141 (Version 6)
Quarter: 2012Q4

REPORT INFORMATION
  Report Type: Report from Study
  Country: US (occurrence: US)
  Receive Date: 20120705
  Receipt Date: 20121003
  Transmission Date: 20130627
  Serious: Yes (Disabling)
  Sender: FDA-Public Use
  Company Number: US-ROCHE-1082781

PATIENT
  Age: 53 Year
  Sex: Male
  Weight: 67 kg

DRUGS (7)
  1. PEGASYS [Suspect]
     Indication: HEPATITIS C
     Route: 065
     Dates: start: 20110708, end: 20120206
  2. PEGASYS [Suspect]
     Dosage: reduced dosage
     Route: 065
     Dates: start: 20120206, end: 20120320
  3. PEGASYS [Suspect]
     Dosage: reduced dosage
     Route: 065
     Dates: start: 20120320, end: 20120528
  4. PEGASYS [Suspect]
     Route: 065
     Dates: start: 20120528
  5. COPEGUS [Suspect]
     Indication: HEPATITIS C
     Route: 065
     Dates: start: 20110708
  6. COPEGUS [Suspect]
     Route: 065
     Dates: start: 20120604
  7. UNSPECIFIED INGREDIENT [Suspect]
     Indication: HEPATITIS C
     Dosage: loading dose
     Route: 065
     Dates: start: 20110708, end: 20120604

REACTIONS (1)
  - Pericarditis [Recovered/Resolved]
